FAERS Safety Report 26148750 (Version 1)
Quarter: 2025Q4

REPORT INFORMATION
  Report Type: Spontaneous
  Country: US (occurrence: None)
  Receive Date: 20251212
  Receipt Date: 20251212
  Transmission Date: 20260117
  Serious: No
  Sender: ENDO
  Company Number: US-ENDO USA, INC.-2025-002169

PATIENT
  Sex: Female

DRUGS (5)
  1. FROVA [Suspect]
     Active Substance: FROVATRIPTAN SUCCINATE
     Indication: Migraine
     Dosage: UNK UNKNOWN, UNKNOWN
     Route: 065
  2. FROVA [Suspect]
     Active Substance: FROVATRIPTAN SUCCINATE
     Dosage: UNK UNKNOWN, UNKNOWN (TWICE A MONTH OR MAYBE THREE TIMES A MONTH)
     Route: 065
  3. FROVA [Suspect]
     Active Substance: FROVATRIPTAN SUCCINATE
     Dosage: UNK UNKNOWN, BID (THREE TO SIX HOURS AFTER)
     Route: 065
  4. FROVA [Suspect]
     Active Substance: FROVATRIPTAN SUCCINATE
     Dosage: UNK UNKNOWN, UNKNOWN (TAKES ONE AND THEN ONE NEXT DAY)
     Route: 065
  5. NURTEC ODT [Concomitant]
     Active Substance: RIMEGEPANT SULFATE
     Indication: Migraine
     Dosage: UNK UNKNOWN, QOD
     Route: 065

REACTIONS (3)
  - Drug effect less than expected [Unknown]
  - Product dose omission issue [Recovered/Resolved]
  - Product availability issue [Recovered/Resolved]
